FAERS Safety Report 23573760 (Version 2)
Quarter: 2024Q2

REPORT INFORMATION
  Report Type: Report from Study
  Country: US (occurrence: US)
  Receive Date: 20240228
  Receipt Date: 20240609
  Transmission Date: 20240716
  Serious: Yes (Hospitalization, Other)
  Sender: FDA-Public Use
  Company Number: US-ABBVIE-5652446

PATIENT
  Sex: Male

DRUGS (3)
  1. SKYRIZI [Suspect]
     Active Substance: RISANKIZUMAB-RZAA
     Indication: Psoriatic arthropathy
     Dosage: FORM STRENGTH: 150 MG/ML WEEK 0
     Route: 058
     Dates: start: 20230318, end: 20230318
  2. SKYRIZI [Suspect]
     Active Substance: RISANKIZUMAB-RZAA
     Dosage: FORM STRENGTH: 150 MG/ML WEEK 4
     Route: 058
     Dates: start: 20230415, end: 20230415
  3. SKYRIZI [Suspect]
     Active Substance: RISANKIZUMAB-RZAA
     Dosage: FORM STRENGTH: 150 MG/ML WEEK 12
     Route: 058
     Dates: start: 202310, end: 202310

REACTIONS (3)
  - Hernia [Unknown]
  - Postoperative wound infection [Unknown]
  - Infection [Unknown]

NARRATIVE: CASE EVENT DATE: 20230101
